FAERS Safety Report 6259400-X (Version None)
Quarter: 2009Q3

REPORT INFORMATION
  Report Type: 
  Country: None (occurrence: None)
  Receive Date: 20090706
  Receipt Date: 20090622
  Transmission Date: 20100115
  Serious: Yes (Hospitalization)
  Sender: FDA-Public Use
  Company Number: 236722K09USA

PATIENT
  Age: 30 Year
  Sex: Female

DRUGS (1)
  1. REBIF [Suspect]
     Indication: MULTIPLE SCLEROSIS
     Dosage: 44 MCG, 3 IN 1 WEEKS, SUBCUTANEOUS
     Route: 058
     Dates: start: 20080505

REACTIONS (6)
  - CYSTITIS [None]
  - HAEMATOCRIT DECREASED [None]
  - HEADACHE [None]
  - MUSCLE SPASTICITY [None]
  - PARAESTHESIA [None]
  - URINARY TRACT INFECTION [None]
